FAERS Safety Report 8761173 (Version 1)
Quarter: 2012Q4

REPORT INFORMATION
  Report Type: 
  Country: GB (occurrence: GB)
  Receive Date: 20120830
  Receipt Date: 20120830
  Transmission Date: 20130627
  Serious: Yes (Hospitalization)
  Sender: FDA-Public Use
  Company Number: GB-MYLANLABS-2012S1017020

PATIENT
  Age: 26 Year
  Sex: Female
  Weight: 39 kg

DRUGS (4)
  1. DOXYCYCLINE [Suspect]
     Indication: PRODUCT USED FOR UNKNOWN INDICATION
     Route: 048
     Dates: start: 20120728
  2. ERYTHROMYCIN [Concomitant]
     Indication: INFECTION
     Route: 048
     Dates: start: 20120613
  3. FLUOXETINE [Concomitant]
     Indication: PRODUCT USED FOR UNKNOWN INDICATION
  4. FORTISIP [Concomitant]
     Indication: PRODUCT USED FOR UNKNOWN INDICATION

REACTIONS (3)
  - Confusional state [Recovered/Resolved]
  - Dyskinesia [Recovered/Resolved]
  - Malaise [Recovered/Resolved]
